FAERS Safety Report 18345747 (Version 4)
Quarter: 2022Q3

REPORT INFORMATION
  Report Type: Report from Study
  Country: US (occurrence: US)
  Receive Date: 20201005
  Receipt Date: 20220726
  Transmission Date: 20221027
  Serious: Yes (Other)
  Sender: FDA-Public Use
  Company Number: US-SHIRE-US202032173

PATIENT
  Age: 39 Year
  Sex: Male

DRUGS (3)
  1. HEMOFIL [Suspect]
     Active Substance: ANTIHEMOPHILIC FACTOR HUMAN
     Indication: Product used for unknown indication
     Dosage: 2160 INTERNATIONAL UNIT
     Route: 042
  2. HEMOFIL [Suspect]
     Active Substance: ANTIHEMOPHILIC FACTOR HUMAN
     Dosage: 1965 INTERNATIONAL UNIT
     Route: 042
  3. HEMOFIL [Suspect]
     Active Substance: ANTIHEMOPHILIC FACTOR HUMAN
     Dosage: 2000 INTERNATIONAL UNIT
     Route: 042

REACTIONS (3)
  - Haemarthrosis [Unknown]
  - Spontaneous haemorrhage [Unknown]
  - Muscle haemorrhage [Unknown]

NARRATIVE: CASE EVENT DATE: 20200929
